FAERS Safety Report 21791458 (Version 8)
Quarter: 2024Q1

REPORT INFORMATION
  Report Type: Report from Study
  Country: KR (occurrence: KR)
  Receive Date: 20221228
  Receipt Date: 20240229
  Transmission Date: 20240410
  Serious: Yes (Hospitalization, Other)
  Sender: FDA-Public Use
  Company Number: KR-CELLTRION INC.-2022KR021775

PATIENT

DRUGS (19)
  1. INVESTIGATIONAL BIOSIMILARS [Suspect]
     Active Substance: INVESTIGATIONAL BIOSIMILARS
     Indication: Chemotherapy
     Dosage: CALCULATED AT 6MG/KG, GIVEN WITH 300MG
     Route: 042
     Dates: start: 20221201, end: 20221221
  2. INVESTIGATIONAL BIOSIMILARS [Suspect]
     Active Substance: INVESTIGATIONAL BIOSIMILARS
     Dosage: 508 MILLIGRAM
     Dates: start: 20221201
  3. INVESTIGATIONAL BIOSIMILARS [Suspect]
     Active Substance: INVESTIGATIONAL BIOSIMILARS
     Dosage: 381 MILLIGRAM 2ND INJECTION
     Dates: start: 20221227
  4. INVESTIGATIONAL BIOSIMILARS [Suspect]
     Active Substance: INVESTIGATIONAL BIOSIMILARS
     Dosage: 3RD CYCLE START, HERZUMA 381MG
     Dates: start: 20230117
  5. INVESTIGATIONAL BIOSIMILARS [Suspect]
     Active Substance: INVESTIGATIONAL BIOSIMILARS
     Dosage: 381 MG
     Dates: start: 20230120
  6. INVESTIGATIONAL BIOSIMILARS [Suspect]
     Active Substance: INVESTIGATIONAL BIOSIMILARS
     Dosage: HERZUMA 381MG
     Dates: start: 20230209
  7. NERATINIB [Suspect]
     Active Substance: NERATINIB
     Indication: Chemotherapy
     Dosage: 240 MG
     Route: 048
     Dates: start: 20221201
  8. NERATINIB [Suspect]
     Active Substance: NERATINIB
     Dosage: 6 TABS 240 MG
     Dates: start: 20221227, end: 20230103
  9. NERATINIB [Suspect]
     Active Substance: NERATINIB
     Dosage: UNK
     Dates: start: 20230102
  10. NERATINIB [Suspect]
     Active Substance: NERATINIB
     Dosage: NERATINIB 4TABS 160MG
     Dates: start: 20230117
  11. NERATINIB [Suspect]
     Active Substance: NERATINIB
     Dosage: 160 MILLIGRAM
     Dates: start: 20230120, end: 20230123
  12. NERATINIB [Suspect]
     Active Substance: NERATINIB
     Dosage: KEEP NERATINIB 4TABS 160MG
     Dates: start: 20230209, end: 20230211
  13. JARDIANCE [Concomitant]
     Active Substance: EMPAGLIFLOZIN
     Indication: Diabetes mellitus
     Dosage: 10 MG, QD
     Route: 048
     Dates: start: 20151201, end: 20221221
  14. METFORMIN HYDROCHLORIDE [Concomitant]
     Active Substance: METFORMIN HYDROCHLORIDE
     Indication: Diabetes mellitus
     Dosage: 850 MG, BID
     Route: 048
     Dates: start: 20151201, end: 20221221
  15. FENTORA [Concomitant]
     Active Substance: FENTANYL CITRATE
     Indication: Pain management
     Dosage: 4 TAB QD
     Route: 048
     Dates: start: 20221110
  16. GLICLAZIDE [Concomitant]
     Active Substance: GLICLAZIDE
     Indication: Diabetes mellitus
     Dosage: 40 MG, QD
     Route: 048
     Dates: start: 20221222
  17. NALOXONE HYDROCHLORIDE\OXYCODONE HYDROCHLORIDE [Concomitant]
     Active Substance: NALOXONE HYDROCHLORIDE\OXYCODONE HYDROCHLORIDE
     Indication: Pain management
     Dosage: 10 MG, BID
     Route: 048
     Dates: start: 20221110
  18. LINAGLIPTIN [Concomitant]
     Active Substance: LINAGLIPTIN
     Indication: Diabetes mellitus
     Dosage: 5 MG, QD
     Route: 048
     Dates: start: 20221222
  19. EXFORGE [Concomitant]
     Active Substance: AMLODIPINE BESYLATE\VALSARTAN
     Dosage: 1 TAB, QD
     Route: 048
     Dates: start: 20151201

REACTIONS (3)
  - Acute kidney injury [Recovered/Resolved]
  - Diarrhoea [Recovered/Resolved]
  - Oedema peripheral [Recovering/Resolving]

NARRATIVE: CASE EVENT DATE: 20230104
